FAERS Safety Report 7926696-5 (Version None)
Quarter: 2011Q4

REPORT INFORMATION
  Report Type: 
  Country: None (occurrence: None)
  Receive Date: 20111118
  Receipt Date: 20111111
  Transmission Date: 20120403
  Serious: No
  Sender: FDA-Public Use
  Company Number: US-PFIZER INC-2011277326

PATIENT
  Sex: Male
  Weight: 9.977 kg

DRUGS (1)
  1. IBUPROFEN (ADVIL) [Suspect]
     Indication: ARTHRITIS
     Dosage: UNK, 2X/DAY
     Route: 048
     Dates: end: 20110901

REACTIONS (3)
  - PAIN [None]
  - MUSCULOSKELETAL STIFFNESS [None]
  - INCORRECT DRUG ADMINISTRATION DURATION [None]
